FAERS Safety Report 24278368 (Version 1)
Quarter: 2024Q3

REPORT INFORMATION
  Report Type: Spontaneous
  Country: AU (occurrence: AU)
  Receive Date: 20240903
  Receipt Date: 20240903
  Transmission Date: 20241016
  Serious: Yes (Other)
  Sender: MYLAN
  Company Number: AU-MYLANLABS-2024M1079258

PATIENT
  Age: 37 Year
  Sex: Male

DRUGS (1)
  1. CLOZARIL [Suspect]
     Active Substance: CLOZAPINE
     Indication: Schizophrenia
     Dosage: 450 MILLIGRAM
     Route: 048
     Dates: start: 20201002

REACTIONS (2)
  - Parainfluenzae virus infection [Unknown]
  - Neutrophil count decreased [Recovered/Resolved]

NARRATIVE: CASE EVENT DATE: 20240826
